FAERS Safety Report 6184470-7 (Version None)
Quarter: 2009Q2

REPORT INFORMATION
  Report Type: 
  Country: None (occurrence: None)
  Receive Date: 20090508
  Receipt Date: 20090423
  Transmission Date: 20091009
  Serious: No
  Sender: FDA-Public Use
  Company Number: B0570362A

PATIENT
  Age: 10 Year

DRUGS (1)
  1. RELENZA [Suspect]
     Indication: INFLUENZA
     Route: 055
     Dates: start: 20090413

REACTIONS (2)
  - NO ADVERSE EVENT [None]
  - OVERDOSE [None]
